FAERS Safety Report 16305635 (Version 1)
Quarter: 2019Q2

REPORT INFORMATION
  Report Type: Spontaneous
  Country: AF (occurrence: AF)
  Receive Date: 20190512
  Receipt Date: 20190512
  Transmission Date: 20190711
  Serious: Yes (Life-Threatening)
  Sender: FDA-Public Use
  Company Number: None

PATIENT
  Age: 79 Year
  Sex: Female
  Weight: 72 kg

DRUGS (7)
  1. CALCIUM [Concomitant]
     Active Substance: CALCIUM
  2. CRANBERRY. [Concomitant]
     Active Substance: CRANBERRY
  3. IRON [Concomitant]
     Active Substance: IRON
  4. B6 [Concomitant]
     Active Substance: PYRIDOXINE HYDROCHLORIDE
  5. VITAMINS [Concomitant]
     Active Substance: VITAMINS
  6. BENZONATATE. [Suspect]
     Active Substance: BENZONATATE
     Indication: COUGH
     Dosage: ?          QUANTITY:1 CAPSULE(S);?
     Route: 048
     Dates: start: 20190504, end: 20190507
  7. OLD AGE SUPPLEMENTS [Concomitant]

REACTIONS (6)
  - Dysphagia [None]
  - Hypoaesthesia [None]
  - Paraesthesia oral [None]
  - Dyspnoea [None]
  - Throat tightness [None]
  - Product use complaint [None]

NARRATIVE: CASE EVENT DATE: 20190509
